APPROVED DRUG PRODUCT: MEROPENEM
Active Ingredient: MEROPENEM
Strength: 1GM/VIAL
Dosage Form/Route: INJECTABLE;INJECTION
Application: A090940 | Product #002
Applicant: HOSPIRA INC
Approved: Jun 22, 2010 | RLD: No | RS: No | Type: DISCN